FAERS Safety Report 19121071 (Version 1)
Quarter: 2021Q2

REPORT INFORMATION
  Report Type: Spontaneous
  Country: IT (occurrence: IT)
  Receive Date: 20210412
  Receipt Date: 20210412
  Transmission Date: 20210717
  Serious: Yes (Other)
  Sender: FDA-Public Use
  Company Number: IT-MYLANLABS-2021M1020413

PATIENT
  Age: 71 Year
  Sex: Male

DRUGS (6)
  1. SERTRALINE [Suspect]
     Active Substance: SERTRALINE HYDROCHLORIDE
     Indication: AFFECTIVE DISORDER
     Dosage: UNK
     Route: 048
     Dates: start: 2010, end: 2020
  2. PAROXETINE. [Suspect]
     Active Substance: PAROXETINE
     Indication: AFFECTIVE DISORDER
     Dosage: UNK
     Route: 048
     Dates: start: 2010, end: 2020
  3. SERTRALINE [Suspect]
     Active Substance: SERTRALINE HYDROCHLORIDE
     Indication: MEMORY IMPAIRMENT
  4. MIRTAZAPINE. [Suspect]
     Active Substance: MIRTAZAPINE
     Indication: MEMORY IMPAIRMENT
     Dosage: 30 MILLIGRAM
     Dates: start: 2010, end: 2020
  5. PAROXETINE. [Suspect]
     Active Substance: PAROXETINE
     Indication: MEMORY IMPAIRMENT
  6. MIRTAZAPINE. [Suspect]
     Active Substance: MIRTAZAPINE
     Indication: AFFECTIVE DISORDER
     Dosage: UNK
     Route: 048
     Dates: start: 2010, end: 2020

REACTIONS (23)
  - Klebsiella infection [Unknown]
  - Condition aggravated [Recovering/Resolving]
  - Nervous system disorder [Recovered/Resolved]
  - Perineal pain [Unknown]
  - Weight decreased [Unknown]
  - Dysuria [Unknown]
  - Oliguria [Recovered/Resolved]
  - Sleep disorder [Recovered/Resolved]
  - Benign prostatic hyperplasia [Recovered/Resolved]
  - Cystitis interstitial [Unknown]
  - Insomnia [Recovered/Resolved]
  - Urethral stenosis [Recovered/Resolved]
  - Micturition urgency [Recovering/Resolving]
  - Hypertonic bladder [Recovered/Resolved]
  - Depression [Recovering/Resolving]
  - Salivary gland disorder [Recovered/Resolved]
  - Parapsoriasis [Unknown]
  - Rash [Unknown]
  - Escherichia infection [Recovered/Resolved]
  - Hypoaesthesia [Recovered/Resolved]
  - Oral candidiasis [Recovered/Resolved]
  - Abdominal pain [Unknown]
  - Constipation [Unknown]

NARRATIVE: CASE EVENT DATE: 2013
